FAERS Safety Report 8426897-6 (Version None)
Quarter: 2012Q2

REPORT INFORMATION
  Report Type: 
  Country: None (occurrence: None)
  Receive Date: 20120611
  Receipt Date: 20120528
  Transmission Date: 20120825
  Serious: Yes (Death)
  Sender: FDA-Public Use
  Company Number: CN-PFIZER INC-2012133699

PATIENT

DRUGS (8)
  1. PANTOPRAZOLE [Suspect]
     Indication: PROPHYLAXIS
     Dosage: 40 MG, DAILY
     Route: 058
  2. CLOPIDOGREL [Concomitant]
     Dosage: 75 MG, UNK
  3. TIROFIBAN HYDROCHLORIDE [Concomitant]
     Dosage: 0.4 MCG/KG.MIN, INFUSION FOR 30 MINUTES
     Route: 041
  4. ENOXAPARIN [Concomitant]
     Dosage: 1 MG/KG, 2X/DAY
     Route: 058
  5. PANTOPRAZOLE [Suspect]
     Dosage: 40 MG, 2X/DAY
     Route: 048
  6. ASPIRIN [Concomitant]
     Dosage: 100 MG, UNK
  7. TIROFIBAN HYDROCHLORIDE [Concomitant]
     Dosage: 0.1 MCG/KG.MIN
     Route: 041
  8. ENOXAPARIN [Concomitant]
     Dosage: 40 MG, 2X/DAY
     Route: 058

REACTIONS (1)
  - DEATH [None]
